FAERS Safety Report 4319240-5 (Version None)
Quarter: 2004Q1

REPORT INFORMATION
  Report Type: 
  Country: None (occurrence: None)
  Receive Date: 20040316
  Receipt Date: 20040302
  Transmission Date: 20041129
  Serious: Yes (Other)
  Sender: FDA-Public Use
  Company Number: 2004202148JP

PATIENT
  Age: 23 Year
  Sex: Male

DRUGS (4)
  1. DOXORUBICIN HCL [Suspect]
     Indication: BONE SARCOMA
     Dosage: 90 MG/M2, 2 CYCLES, INTRA-ARTERIAL
     Route: 013
  2. CISPLATIN [Suspect]
     Indication: BONE SARCOMA
     Dosage: 100 MG/M2, 2 CYCLES, INTRA-ARTERIAL
     Route: 013
  3. METHOTREXATE [Suspect]
     Indication: BONE SARCOMA
     Dosage: 10000 MG/M2, 2 CYCLES
  4. IFOSFAMIDE [Suspect]
     Indication: BONE SARCOMA
     Dosage: 10000 MG/M2, 2 CYCLES
     Route: 042

REACTIONS (1)
  - SYNOVIAL SARCOMA [None]
